FAERS Safety Report 4328414-9 (Version None)
Quarter: 2004Q1

REPORT INFORMATION
  Report Type: 
  Country: None (occurrence: None)
  Receive Date: 20040325
  Receipt Date: 20030527
  Transmission Date: 20041129
  Serious: No
  Sender: FDA-Public Use
  Company Number: TAP2001Q00494

PATIENT
  Age: 67 Year
  Sex: Male
  Weight: 87.3174 kg

DRUGS (3)
  1. LUPRON DEPOT [Suspect]
     Indication: PROSTATE CANCER
     Dosage: 7.5 MG, 1 IN 1 M, INTRAMUSCULAR
     Route: 030
     Dates: start: 19980101, end: 20030527
  2. PRILOSEC [Concomitant]
  3. FLONASE [Concomitant]

REACTIONS (9)
  - ASTHENIA [None]
  - CHEST DISCOMFORT [None]
  - CONDITION AGGRAVATED [None]
  - FIBROMYALGIA [None]
  - HOT FLUSH [None]
  - MUSCLE ATROPHY [None]
  - MUSCULAR WEAKNESS [None]
  - NASAL CONGESTION [None]
  - PULMONARY FIBROSIS [None]
